FAERS Safety Report 8744342 (Version 3)
Quarter: 2013Q1

REPORT INFORMATION
  Report Type: Report from Study
  Country: JP (occurrence: JP)
  Receive Date: 20120825
  Receipt Date: 20130219
  Transmission Date: 20140127
  Serious: Yes (Other)
  Sender: FDA-Public Use
  Company Number: JP-009507513-2012SP027863

PATIENT
  Age: 57 Year
  Sex: Female
  Weight: 57 kg

DRUGS (15)
  1. PEGINTRON [Suspect]
     Indication: CHRONIC HEPATITIS C
     Dosage: 1.5 MICROGRAM PER KILOGRAM, QW
     Route: 058
     Dates: start: 20120315, end: 20120531
  2. PEGINTRON [Suspect]
     Dosage: 1.5 MICROGRAM PER KILOGRAM, QW
     Route: 058
     Dates: start: 20120614
  3. REBETOL [Suspect]
     Indication: CHRONIC HEPATITIS C
     Dosage: 400 MG, QD
     Route: 048
     Dates: start: 20120315, end: 20120501
  4. REBETOL [Suspect]
     Dosage: 200 MG, QD
     Route: 048
     Dates: start: 20120502, end: 20120606
  5. REBETOL [Suspect]
     Dosage: 200 MG, QD
     Route: 048
     Dates: start: 20120614, end: 20120627
  6. REBETOL [Suspect]
     Dosage: 400 MG, QD
     Route: 048
     Dates: start: 20120628, end: 20120711
  7. REBETOL [Suspect]
     Dosage: 600 MG, QD
     Route: 048
     Dates: start: 20120712, end: 20120822
  8. REBETOL [Suspect]
     Dosage: 400 MG, QD
     Route: 048
     Dates: start: 20120823
  9. TELAVIC [Suspect]
     Indication: CHRONIC HEPATITIS C
     Dosage: 1500 MG, QD
     Route: 048
     Dates: start: 20120315, end: 20120523
  10. TELAVIC [Suspect]
     Dosage: 750 MG, QD
     Route: 048
     Dates: start: 20120524, end: 20120607
  11. PURSENNID (SENNOSIDES) [Concomitant]
     Indication: CONSTIPATION
     Dosage: 24 MG, QD
     Route: 048
     Dates: start: 20120319, end: 20120321
  12. CONFATANIN [Concomitant]
     Indication: PYREXIA
     Dosage: 60 MG/DAY AS NEEDED
     Route: 065
     Dates: start: 20120316
  13. DERMOVATE [Concomitant]
     Indication: RASH
     Dosage: TWICE TO THRICE A DAY
     Route: 065
     Dates: start: 20120322, end: 20120329
  14. HUSTAZOL (CLOPERASTINE HYDROCHLORIDE) [Concomitant]
     Indication: UPPER RESPIRATORY TRACT INFLAMMATION
     Dosage: 20 MG, QD
     Route: 048
     Dates: start: 20120524, end: 20120613
  15. [THERAPY UNSPECIFIED] [Concomitant]
     Indication: PHARYNGITIS
     Dosage: 2-3 TABLETS/DAY
     Dates: start: 20120524, end: 20120531

REACTIONS (3)
  - Blood uric acid increased [Recovered/Resolved]
  - Pancytopenia [Recovering/Resolving]
  - Haemoglobin decreased [Recovered/Resolved]
